FAERS Safety Report 11745386 (Version 1)
Quarter: 2015Q4

REPORT INFORMATION
  Report Type: Spontaneous
  Country: US (occurrence: None)
  Receive Date: 20151116
  Receipt Date: 20151116
  Transmission Date: 20160304
  Serious: Yes (Death, Hospitalization)
  Sender: FDA-Public Use
  Company Number: None

PATIENT
  Age: 88 Year
  Sex: Female
  Weight: 69 kg

DRUGS (20)
  1. RALOXIFENE. [Concomitant]
     Active Substance: RALOXIFENE
  2. PRILOSEC [Concomitant]
     Active Substance: OMEPRAZOLE MAGNESIUM
  3. SIMVASTATIN. [Concomitant]
     Active Substance: SIMVASTATIN
  4. HUMULIN NOS [Concomitant]
     Active Substance: INSULIN HUMAN
  5. LEVOTHYROXINE. [Concomitant]
     Active Substance: LEVOTHYROXINE
  6. VITAMIN D3 [Concomitant]
     Active Substance: CHOLECALCIFEROL
  7. IMDUR [Concomitant]
     Active Substance: ISOSORBIDE MONONITRATE
  8. IOHEXOL [Concomitant]
     Active Substance: IOHEXOL
  9. REGULAR INSULIN [Concomitant]
     Active Substance: INSULIN NOS
  10. NEOSYNEPHRINE [Concomitant]
     Active Substance: PHENYLEPHRINE HYDROCHLORIDE
  11. RIVAROXABAN 15MG [Suspect]
     Active Substance: RIVAROXABAN
     Indication: ATRIAL FIBRILLATION
     Dosage: 1 PILL
     Route: 048
  12. SPIRONOLACTONE. [Concomitant]
     Active Substance: SPIRONOLACTONE
  13. LISINOPRIL. [Concomitant]
     Active Substance: LISINOPRIL
  14. CALCIUM GLUCONATE. [Concomitant]
     Active Substance: CALCIUM GLUCONATE
  15. BUMEX [Concomitant]
     Active Substance: BUMETANIDE
  16. METOPROLOL XL [Concomitant]
     Active Substance: METOPROLOL
  17. FOLIC ACID. [Concomitant]
     Active Substance: FOLIC ACID
  18. PROTONIX [Concomitant]
     Active Substance: PANTOPRAZOLE SODIUM
  19. SODIUM CHLORIE [Concomitant]
  20. ACETAMINOPHEN. [Concomitant]
     Active Substance: ACETAMINOPHEN

REACTIONS (3)
  - Vaginal haemorrhage [None]
  - Anaemia [None]
  - Cardiac arrest [None]

NARRATIVE: CASE EVENT DATE: 20151010
